FAERS Safety Report 7937516-7 (Version None)
Quarter: 2011Q4

REPORT INFORMATION
  Report Type: 
  Country: None (occurrence: None)
  Receive Date: 20111123
  Receipt Date: 20111114
  Transmission Date: 20120403
  Serious: Yes (Hospitalization)
  Sender: FDA-Public Use
  Company Number: IT-ASTRAZENECA-2011SE64274

PATIENT
  Age: 22588 Day
  Sex: Female

DRUGS (4)
  1. EN [Suspect]
     Indication: DEPRESSION
     Route: 048
     Dates: start: 20110601, end: 20110627
  2. WELLBUTRIN [Suspect]
     Indication: DEPRESSION
     Route: 048
     Dates: start: 20110601, end: 20110627
  3. LAMOTRIGINE [Suspect]
     Indication: DEPRESSION
     Route: 048
     Dates: start: 20110601, end: 20110627
  4. SEROQUEL [Suspect]
     Indication: DEPRESSION
     Route: 048
     Dates: start: 20110601, end: 20110627

REACTIONS (4)
  - SPEECH DISORDER [None]
  - BRADYKINESIA [None]
  - VERTIGO [None]
  - PARAESTHESIA [None]
